FAERS Safety Report 8503127-8 (Version None)
Quarter: 2012Q3

REPORT INFORMATION
  Report Type: 
  Country: None (occurrence: None)
  Receive Date: 20120711
  Receipt Date: 20120709
  Transmission Date: 20120928
  Serious: Yes (Hospitalization)
  Sender: FDA-Public Use
  Company Number: US-PFIZER INC-2012164598

PATIENT
  Sex: Female

DRUGS (7)
  1. TIKOSYN [Suspect]
     Indication: ATRIAL FIBRILLATION
     Dosage: 500 UG, 2X/DAY
     Dates: end: 20120706
  2. CELEBREX [Concomitant]
     Indication: OSTEOARTHRITIS
     Dosage: 200 MG, DAILY
  3. SPIRONOLACTONE [Concomitant]
     Dosage: 25 MG, DAILY
  4. DILTIAZEM [Concomitant]
     Indication: ATRIAL FIBRILLATION
     Dosage: 40 MG, DAILY
  5. WARFARIN [Concomitant]
     Indication: ATRIAL FIBRILLATION
     Dosage: 5 MG, ONE DAY
  6. WARFARIN [Concomitant]
     Dosage: 7.5 MG, OTHER DAY
  7. VALACICLOVIR [Concomitant]
     Dosage: 500 MG, DAILY

REACTIONS (1)
  - VENTRICULAR TACHYCARDIA [None]
